FAERS Safety Report 6166179-9 (Version None)
Quarter: 2009Q2

REPORT INFORMATION
  Report Type: 
  Country: None (occurrence: None)
  Receive Date: 20090424
  Receipt Date: 20090415
  Transmission Date: 20091009
  Serious: Yes (Hospitalization)
  Sender: FDA-Public Use
  Company Number: US-BIOGENIDEC-2008BI002398

PATIENT
  Age: 54 Year
  Sex: Female
  Weight: 84 kg

DRUGS (3)
  1. AVONEX [Suspect]
     Indication: MULTIPLE SCLEROSIS
     Route: 030
     Dates: start: 20030916, end: 20040501
  2. AVONEX [Suspect]
     Route: 030
     Dates: start: 20040501
  3. PROTONIX [Concomitant]
     Indication: GASTRITIS

REACTIONS (12)
  - BACK PAIN [None]
  - BILIARY DYSKINESIA [None]
  - FEAR [None]
  - JAW DISORDER [None]
  - LIPOSUCTION [None]
  - MAMMOPLASTY [None]
  - MENTAL DISORDER [None]
  - POSTOPERATIVE WOUND INFECTION [None]
  - SCAB [None]
  - STRESS [None]
  - TOOTH DISORDER [None]
  - WEIGHT INCREASED [None]
